FAERS Safety Report 13478821 (Version 4)
Quarter: 2018Q1

REPORT INFORMATION
  Report Type: Report from Study
  Country: US (occurrence: US)
  Receive Date: 20170424
  Receipt Date: 20180117
  Transmission Date: 20180508
  Serious: Yes (Hospitalization)
  Sender: FDA-Public Use
  Company Number: US-AMGEN-USASL2017032840

PATIENT
  Age: 64 Year
  Sex: Female

DRUGS (2)
  1. REPATHA [Suspect]
     Active Substance: EVOLOCUMAB
     Indication: HYPERCHOLESTEROLAEMIA
     Dosage: 420 MG, QMO
     Route: 065
     Dates: start: 20170103
  2. INSULIN [Concomitant]
     Active Substance: INSULIN NOS

REACTIONS (7)
  - Rhinorrhoea [Unknown]
  - Facial pain [Unknown]
  - Dry eye [Unknown]
  - Back pain [Unknown]
  - Nasopharyngitis [Unknown]
  - Muscle spasms [Unknown]
  - Cataract [Unknown]
